FAERS Safety Report 9044898 (Version 2)
Quarter: 2013Q2

REPORT INFORMATION
  Report Type: Report from Study
  Country: JP (occurrence: JP)
  Receive Date: 20130130
  Receipt Date: 20130429
  Transmission Date: 20140414
  Serious: Yes (Hospitalization)
  Sender: FDA-Public Use
  Company Number: JP-GLAXOSMITHKLINE-B0859963A

PATIENT
  Sex: Male

DRUGS (9)
  1. REVOLADE [Suspect]
     Indication: IDIOPATHIC THROMBOCYTOPENIC PURPURA
     Route: 048
  2. OZAPEN [Concomitant]
     Route: 042
     Dates: start: 20111226, end: 20111231
  3. EQUA [Concomitant]
     Route: 048
     Dates: start: 20120116
  4. BASEN [Concomitant]
     Route: 048
     Dates: start: 20120116
  5. BAYASPIRIN [Concomitant]
     Route: 048
     Dates: start: 20120110
  6. TAKEPRON [Concomitant]
     Indication: PROPHYLAXIS
     Route: 048
     Dates: start: 20111227
  7. AMARYL [Concomitant]
     Route: 048
     Dates: start: 20120118
  8. ROCEPHIN [Concomitant]
     Route: 042
     Dates: start: 20111226, end: 20111228
  9. MEROPEN [Concomitant]
     Route: 042
     Dates: start: 20120112, end: 20120118

REACTIONS (1)
  - Cerebral infarction [Recovering/Resolving]
